FAERS Safety Report 15811782 (Version 1)
Quarter: 2019Q1

REPORT INFORMATION
  Report Type: Spontaneous
  Country: ES (occurrence: ES)
  Receive Date: 20190111
  Receipt Date: 20190111
  Transmission Date: 20190417
  Serious: Yes (Other)
  Sender: FDA-Public Use
  Company Number: PHHY2019ES003048

PATIENT
  Age: 39 Year
  Sex: Female

DRUGS (2)
  1. CORTISONE [Concomitant]
     Active Substance: CORTISONE\HYDROCORTISONE
     Indication: PAIN
     Dosage: UNK
     Route: 065
  2. TACROLIMUS. [Suspect]
     Active Substance: TACROLIMUS
     Indication: RENAL TRANSPLANT
     Dosage: 3.5 MG, QD (2 MG IN THE MORNING + 1.5 MG IN THE EVENING   )
     Route: 065

REACTIONS (3)
  - Urinary tract infection [Unknown]
  - Movement disorder [Unknown]
  - Diabetes mellitus [Unknown]
